FAERS Safety Report 8661653 (Version 2)
Quarter: 2012Q4

REPORT INFORMATION
  Report Type: Spontaneous
  Country: US (occurrence: None)
  Receive Date: 20120627
  Receipt Date: 20120918
  Transmission Date: 20130627
  Serious: Yes (Other)
  Sender: FDA-Public Use
  Company Number: JPI-P-022118

PATIENT
  Age: 28 Year
  Sex: Male

DRUGS (2)
  1. XYREM [Suspect]
     Indication: DRUG USE FOR UNKNOWN INDICATION
     Dosage: 9 gm (4.5 gm,2 in 1 D),Oral
     Route: 048
     Dates: start: 20051123
  2. XYREM [Suspect]
     Indication: DRUG USE FOR UNKNOWN INDICATION
     Dosage: 11 gm (5.5 gm,2 in 1 D),Oral
     Route: 048
     Dates: start: 20080606

REACTIONS (1)
  - Thrombosis [None]
